FAERS Safety Report 4336669-X (Version None)
Quarter: 2004Q2

REPORT INFORMATION
  Report Type: 
  Country: None (occurrence: None)
  Receive Date: 20040412
  Receipt Date: 20031014
  Transmission Date: 20050107
  Serious: Yes (Other)
  Sender: FDA-Public Use
  Company Number: BE-GLAXOSMITHKLINE-B0311873A

PATIENT
  Age: 34 Year
  Sex: Female
  Weight: 83 kg

DRUGS (7)
  1. SEROXAT [Suspect]
     Indication: PERSONALITY DISORDER
     Route: 048
     Dates: start: 20021001
  2. COCARBOXYLASE [Concomitant]
     Indication: DRUG USE FOR UNKNOWN INDICATION
     Dosage: 40MG PER DAY
     Route: 065
  3. HYDROXOCOBOLAMINE [Concomitant]
     Indication: DRUG USE FOR UNKNOWN INDICATION
     Dosage: 5MG PER DAY
     Route: 065
  4. MULTI-VITAMINS [Concomitant]
     Indication: PREGNANCY
     Dosage: 1TAB PER DAY
     Route: 048
     Dates: start: 20030601, end: 20030901
  5. OMNIBIONTA [Concomitant]
     Indication: PREGNANCY
     Dosage: 1TAB PER DAY
     Route: 048
     Dates: start: 20030901
  6. VOLTAREN [Concomitant]
     Indication: BACK PAIN
     Dosage: 75MG PER DAY
     Route: 065
     Dates: start: 20030715, end: 20030720
  7. DAFALGAN [Concomitant]
     Indication: BACK PAIN
     Dosage: 4G PER DAY
     Route: 048
     Dates: start: 20030715, end: 20030720

REACTIONS (11)
  - AZOTAEMIA [None]
  - BLOOD URIC ACID INCREASED [None]
  - DRUG EXPOSURE DURING PREGNANCY [None]
  - HYPERTENSION [None]
  - HYPOTHYROIDISM [None]
  - PRE-ECLAMPSIA [None]
  - PREGNANCY [None]
  - SMEAR CERVIX ABNORMAL [None]
  - STREPTOCOCCAL INFECTION [None]
  - THYROXINE FREE DECREASED [None]
  - WEIGHT INCREASED [None]
